FAERS Safety Report 9642271 (Version 3)
Quarter: 2013Q4

REPORT INFORMATION
  Report Type: Spontaneous
  Country: AU (occurrence: AU)
  Receive Date: 20131024
  Receipt Date: 20131209
  Transmission Date: 20140711
  Serious: Yes (Hospitalization)
  Sender: FDA-Public Use
  Company Number: AU-BIOGENIDEC-2013BI101061

PATIENT
  Age: 63 Year
  Sex: Female

DRUGS (3)
  1. AVONEX [Suspect]
     Indication: MULTIPLE SCLEROSIS
     Route: 030
     Dates: start: 2007
  2. ARIANNA [Concomitant]
  3. VALTREX [Concomitant]

REACTIONS (9)
  - Breast cancer [Not Recovered/Not Resolved]
  - Hypoaesthesia [Unknown]
  - Neuralgia [Unknown]
  - Affective disorder [Unknown]
  - Radiation skin injury [Not Recovered/Not Resolved]
  - Radiation associated pain [Not Recovered/Not Resolved]
  - Depression [Recovered/Resolved]
  - Fatigue [Unknown]
  - Depressed mood [Recovered/Resolved]
